FAERS Safety Report 10358296 (Version 2)
Quarter: 2014Q3

REPORT INFORMATION
  Report Type: Spontaneous
  Country: PH (occurrence: PH)
  Receive Date: 20140801
  Receipt Date: 20140807
  Transmission Date: 20150326
  Serious: Yes (Other)
  Sender: FDA-Public Use
  Company Number: PH-ABBVIE-14P-128-1266895-00

PATIENT
  Age: 65 Year
  Sex: Male
  Weight: 80 kg

DRUGS (5)
  1. FENTANYL. [Concomitant]
     Active Substance: FENTANYL
     Indication: ANALGESIC THERAPY
     Route: 042
  2. SEVOFLURANE (SEVORANE) [Suspect]
     Active Substance: SEVOFLURANE
     Indication: GENERAL ANAESTHESIA
     Dosage: 25 MINUTES/TOTAL DAILY DOSE - 8%
     Route: 055
  3. LIDOCAINE. [Concomitant]
     Active Substance: LIDOCAINE
     Indication: LOCAL ANAESTHESIA
     Dosage: DAILY: 10CC (200MG), INFILTRATION
  4. DORMICUM [Concomitant]
     Active Substance: MIDAZOLAM\MIDAZOLAM HYDROCHLORIDE
     Indication: SEDATION
     Route: 042
  5. ORAL STEROIDS [Concomitant]
     Indication: ARTHRITIS

REACTIONS (5)
  - Device issue [Unknown]
  - Drug ineffective [Unknown]
  - Device defective [None]
  - Anaesthetic complication [Recovered/Resolved]
  - Unwanted awareness during anaesthesia [Recovered/Resolved]
